FAERS Safety Report 4964892-X (Version None)
Quarter: 2006Q2

REPORT INFORMATION
  Report Type: 
  Country: None (occurrence: None)
  Receive Date: 20060403
  Receipt Date: 20060322
  Transmission Date: 20061013
  Serious: No
  Sender: FDA-Public Use
  Company Number: 2005S1000317

PATIENT
  Age: 55 Year
  Sex: Female
  Weight: 65.9984 kg

DRUGS (4)
  1. ACITRETIN [Suspect]
     Indication: PSORIATIC ARTHROPATHY
     Dosage: SEE IMAGE
     Route: 048
     Dates: start: 20050101, end: 20050801
  2. ACITRETIN [Suspect]
     Indication: PSORIATIC ARTHROPATHY
     Dosage: SEE IMAGE
     Route: 048
     Dates: start: 20050801, end: 20051001
  3. ACITRETIN [Suspect]
     Indication: PSORIATIC ARTHROPATHY
     Dosage: SEE IMAGE
     Route: 048
     Dates: start: 20051001, end: 20060131
  4. ACITRETIN [Suspect]
     Indication: PSORIATIC ARTHROPATHY
     Dosage: SEE IMAGE
     Route: 048
     Dates: start: 20060131

REACTIONS (3)
  - EXCESSIVE GRANULATION TISSUE [None]
  - GINGIVAL HYPERPLASIA [None]
  - PARONYCHIA [None]
